FAERS Safety Report 5291852-4 (Version None)
Quarter: 2007Q2

REPORT INFORMATION
  Report Type: 
  Country: None (occurrence: None)
  Receive Date: 20070410
  Receipt Date: 20070328
  Transmission Date: 20071010
  Serious: Yes (Hospitalization)
  Sender: FDA-Public Use
  Company Number: BR-ELI_LILLY_AND_COMPANY-BR200703006645

PATIENT
  Age: 79 Year
  Sex: Female

DRUGS (15)
  1. FORTEO [Suspect]
     Indication: OSTEOPOROSIS
     Dosage: 20 UG, DAILY (1/D)
     Route: 058
     Dates: end: 20070316
  2. VERTIX [Concomitant]
     Dosage: UNK, UNKNOWN
     Route: 065
  3. INDAPAMIDE [Concomitant]
     Dosage: UNK, UNKNOWN
     Route: 065
  4. DRAMIN [Concomitant]
     Dosage: UNK, UNKNOWN
     Route: 065
  5. FOSAMAX [Concomitant]
     Dosage: UNK, UNKNOWN
     Route: 065
  6. EXELON [Concomitant]
     Dosage: 3 MG, UNKNOWN
     Route: 065
  7. ZOLOFT [Concomitant]
     Dosage: UNK, UNKNOWN
     Route: 065
  8. VASOPRIL [Concomitant]
     Dosage: UNK, UNKNOWN
     Route: 065
  9. CENTRUM [Concomitant]
     Dosage: UNK, UNKNOWN
     Route: 065
  10. ROCALTROL [Concomitant]
     Dosage: UNK, UNKNOWN
     Route: 065
  11. ACETYLSALICYLIC ACID SRT [Concomitant]
     Dosage: UNK, UNKNOWN
     Route: 065
  12. REMINYL [Concomitant]
     Dosage: UNK, UNKNOWN
     Route: 065
  13. VASLIP [Concomitant]
     Dosage: UNK, UNKNOWN
     Route: 065
  14. METICORTEN [Concomitant]
     Dosage: UNK, UNKNOWN
     Route: 065
  15. MIOCALVEN [Concomitant]
     Dosage: UNK, UNKNOWN
     Route: 065

REACTIONS (3)
  - CHOKING [None]
  - INJURY ASPHYXIATION [None]
  - PNEUMONIA [None]
